FAERS Safety Report 7559719-6 (Version None)
Quarter: 2011Q2

REPORT INFORMATION
  Report Type: 
  Country: None (occurrence: None)
  Receive Date: 20110621
  Receipt Date: 20110609
  Transmission Date: 20111010
  Serious: Yes (Other)
  Sender: FDA-Public Use
  Company Number: US-ROCHE-777970

PATIENT
  Sex: Male

DRUGS (4)
  1. RIBAVIRIN [Suspect]
     Indication: HEPATITIS C
     Dosage: FREQUENCY:DAILY
     Route: 065
     Dates: start: 20110506
  2. KLONOPIN [Concomitant]
  3. PEGASYS [Suspect]
     Indication: HEPATITIS C
     Route: 065
     Dates: start: 20110506
  4. CELEXA [Concomitant]

REACTIONS (3)
  - NEPHROLITHIASIS [None]
  - SPUTUM DISCOLOURED [None]
  - DYSPNOEA [None]
